FAERS Safety Report 15939501 (Version 3)
Quarter: 2019Q1

REPORT INFORMATION
  Report Type: Spontaneous
  Country: US (occurrence: US)
  Receive Date: 20190208
  Receipt Date: 20190305
  Transmission Date: 20190417
  Serious: Yes (Hospitalization, Other)
  Sender: FDA-Public Use
  Company Number: US-ASTRAZENECA-2018SF22327

PATIENT
  Sex: Female
  Weight: 72.6 kg

DRUGS (34)
  1. NEXIUM [Suspect]
     Active Substance: ESOMEPRAZOLE MAGNESIUM
     Route: 048
     Dates: start: 20000411, end: 20160815
  2. PREDNISONE. [Concomitant]
     Active Substance: PREDNISONE
     Indication: GLUCOCORTICOIDS INCREASED
  3. ULTRAM [Concomitant]
     Active Substance: TRAMADOL HYDROCHLORIDE
  4. ALBUTEROL. [Concomitant]
     Active Substance: ALBUTEROL
  5. ACETAMINOPHEN. [Concomitant]
     Active Substance: ACETAMINOPHEN
  6. DICLOFENAC [Concomitant]
     Active Substance: DICLOFENAC
  7. PRILOSEC [Suspect]
     Active Substance: OMEPRAZOLE MAGNESIUM
     Route: 048
     Dates: start: 20000411, end: 20160815
  8. PROTONIX [Suspect]
     Active Substance: PANTOPRAZOLE SODIUM
     Dosage: GENERIC
     Route: 065
     Dates: start: 1991, end: 2018
  9. TYLENOL [Concomitant]
     Active Substance: ACETAMINOPHEN
  10. MORPHINE [Concomitant]
     Active Substance: MORPHINE
  11. VITAMIN D [Concomitant]
     Active Substance: CHOLECALCIFEROL
     Indication: HYPOTENSION
     Dates: start: 1999, end: 2018
  12. HYDROCODONE [Concomitant]
     Active Substance: HYDROCODONE
     Indication: PAIN
     Dates: start: 1997, end: 2018
  13. ATORVASTATIN [Concomitant]
     Active Substance: ATORVASTATIN
  14. LANOXIN [Concomitant]
     Active Substance: DIGOXIN
  15. PREVACID [Suspect]
     Active Substance: LANSOPRAZOLE
     Dosage: GENERIC
     Route: 065
     Dates: start: 1999, end: 2014
  16. PROTONIX [Suspect]
     Active Substance: PANTOPRAZOLE SODIUM
     Route: 065
     Dates: start: 20000411, end: 20160815
  17. TIZANIDINE. [Concomitant]
     Active Substance: TIZANIDINE
  18. METOCLOPRAMIDE. [Concomitant]
     Active Substance: METOCLOPRAMIDE
     Indication: SWELLING
     Dates: start: 1999, end: 2018
  19. PEPCID [Concomitant]
     Active Substance: FAMOTIDINE
  20. ZANTAC [Concomitant]
     Active Substance: RANITIDINE HYDROCHLORIDE
     Indication: HYPERTENSION
  21. GLUCAGON. [Concomitant]
     Active Substance: GLUCAGON
  22. ASPIRIN. [Concomitant]
     Active Substance: ASPIRIN
     Dates: start: 1999, end: 2018
  23. PRILOSEC [Suspect]
     Active Substance: OMEPRAZOLE MAGNESIUM
     Dosage: GENERIC
     Route: 048
  24. BUMEX [Concomitant]
     Active Substance: BUMETANIDE
  25. INSULIN [Concomitant]
     Active Substance: INSULIN NOS
  26. CYCLOBENZAPRINE. [Concomitant]
     Active Substance: CYCLOBENZAPRINE
  27. CYMBALTA [Concomitant]
     Active Substance: DULOXETINE HYDROCHLORIDE
  28. ZOFRAN [Concomitant]
     Active Substance: ONDANSETRON HYDROCHLORIDE
  29. NEXIUM [Suspect]
     Active Substance: ESOMEPRAZOLE MAGNESIUM
     Dosage: GENERIC
     Route: 048
     Dates: start: 2014, end: 2018
  30. PREVACID [Suspect]
     Active Substance: LANSOPRAZOLE
     Route: 065
     Dates: start: 20000411, end: 20160815
  31. ADVAIR HFA [Concomitant]
     Active Substance: FLUTICASONE PROPIONATE\SALMETEROL XINAFOATE
  32. VITAMIN D3 [Concomitant]
     Active Substance: CHOLECALCIFEROL
  33. TAGAMET [Concomitant]
     Active Substance: CIMETIDINE
  34. PROZAC [Concomitant]
     Active Substance: FLUOXETINE HYDROCHLORIDE

REACTIONS (5)
  - Nephrolithiasis [Unknown]
  - Nephrogenic anaemia [Unknown]
  - Renal failure [Unknown]
  - Chronic kidney disease [Not Recovered/Not Resolved]
  - Acute kidney injury [Unknown]
